FAERS Safety Report 24296678 (Version 1)
Quarter: 2024Q3

REPORT INFORMATION
  Report Type: Spontaneous
  Country: SE (occurrence: SE)
  Receive Date: 20240909
  Receipt Date: 20240909
  Transmission Date: 20241017
  Serious: Yes (Other)
  Sender: MSN LABORATORIES
  Company Number: SE-ADIENNEP-2023AD000145

PATIENT

DRUGS (15)
  1. THIOTEPA [Suspect]
     Active Substance: THIOTEPA
     Indication: Allogenic stem cell transplantation
     Route: 065
  2. THIOTEPA [Suspect]
     Active Substance: THIOTEPA
     Indication: Bone marrow conditioning regimen
  3. THIOTEPA [Suspect]
     Active Substance: THIOTEPA
     Indication: Prophylaxis against graft versus host disease
  4. CYCLOPHOSPHAMIDE [Suspect]
     Active Substance: CYCLOPHOSPHAMIDE
     Indication: Precursor T-lymphoblastic leukaemia acute
     Route: 065
  5. RITUXIMAB [Suspect]
     Active Substance: RITUXIMAB
     Indication: Allogenic stem cell transplantation
     Route: 065
  6. GRAFALON [Suspect]
     Active Substance: LAPINE T-LYMPHOCYTE IMMUNE GLOBULIN
     Indication: Allogenic stem cell transplantation
     Route: 065
  7. FLUDARABINE [Suspect]
     Active Substance: FLUDARABINE PHOSPHATE
     Indication: Allogenic stem cell transplantation
     Route: 065
  8. MYCOPHENOLATE MOFETIL [Suspect]
     Active Substance: MYCOPHENOLATE MOFETIL
     Indication: Allogenic stem cell transplantation
     Route: 065
  9. DEXAMETHASONE [Suspect]
     Active Substance: DEXAMETHASONE
     Indication: Precursor T-lymphoblastic leukaemia acute
     Route: 065
  10. ASPARAGINASE [Suspect]
     Active Substance: ASPARAGINASE
     Indication: Precursor T-lymphoblastic leukaemia acute
     Route: 065
  11. MERCAPTOPURINE [Suspect]
     Active Substance: MERCAPTOPURINE
     Indication: Precursor T-lymphoblastic leukaemia acute
     Route: 065
  12. VINCRISTINE [Suspect]
     Active Substance: VINCRISTINE
     Indication: Precursor T-lymphoblastic leukaemia acute
     Route: 065
  13. DAUNORUBICIN [Suspect]
     Active Substance: DAUNORUBICIN
     Indication: Precursor T-lymphoblastic leukaemia acute
     Route: 065
  14. CYTARABINE [Suspect]
     Active Substance: CYTARABINE
     Indication: Precursor T-lymphoblastic leukaemia acute
     Route: 065
  15. NELARABINE [Suspect]
     Active Substance: NELARABINE
     Indication: Precursor T-lymphoblastic leukaemia acute
     Route: 065

REACTIONS (2)
  - Acute graft versus host disease in intestine [Unknown]
  - Acute graft versus host disease in skin [Unknown]
